FAERS Safety Report 7825584-2 (Version None)
Quarter: 2011Q4

REPORT INFORMATION
  Report Type: 
  Country: None (occurrence: None)
  Receive Date: 20111017
  Receipt Date: 20111003
  Transmission Date: 20120403
  Serious: Yes (Other)
  Sender: FDA-Public Use
  Company Number: 1069848

PATIENT
  Age: 67 Year
  Sex: Female
  Weight: 93 kg

DRUGS (17)
  1. ALBUTEROL [Concomitant]
  2. FUROSEMIDE [Concomitant]
  3. GEMFIBROZIL [Concomitant]
  4. METOCLOPRAMIDE [Concomitant]
  5. PHENAZOPYRIDINE HCL TAB [Concomitant]
  6. OMEPRAZOLE [Concomitant]
  7. SOTALOL HYDROCHLORIDE [Concomitant]
  8. CEFTRIAXONE SODIUM [Suspect]
     Indication: URINARY TRACT INFECTION
     Dosage: 1 G, INTRAMUSCULAR
     Route: 030
  9. CEFUROXIME AXETIL [Concomitant]
  10. PIOGLITAZONE [Concomitant]
  11. (IPRATROPIUM/ABUTEROL) [Concomitant]
  12. METFORMIN HCL [Concomitant]
  13. SIMVASTATIN [Concomitant]
  14. WARFARIN SODIUM [Suspect]
     Dosage: 52.5-54.5 MG WEEKLY,; 54.5-55.5 MG WEEKLY; 7.5 MG DAILY
  15. CITALOPRAM HYDROBROMIDE [Concomitant]
  16. POTASSIUM CHLORIDE [Concomitant]
  17. LEVOTHYROXINE SODIUM [Concomitant]

REACTIONS (2)
  - DRUG INTERACTION [None]
  - INTERNATIONAL NORMALISED RATIO DECREASED [None]
